FAERS Safety Report 16427385 (Version 3)
Quarter: 2020Q1

REPORT INFORMATION
  Report Type: Report from Study
  Country: US (occurrence: US)
  Receive Date: 20190613
  Receipt Date: 20200203
  Transmission Date: 20200409
  Serious: Yes (Other)
  Sender: FDA-Public Use
  Company Number: PHEH2019US024435

PATIENT
  Sex: Female

DRUGS (1)
  1. TEGRETOL [Suspect]
     Active Substance: CARBAMAZEPINE
     Indication: PRODUCT USED FOR UNKNOWN INDICATION
     Route: 065

REACTIONS (6)
  - Epilepsy [Unknown]
  - Brain neoplasm [Unknown]
  - Seizure [Unknown]
  - Cognitive disorder [Unknown]
  - Dandy-Walker syndrome [Unknown]
  - Visual impairment [Unknown]
